FAERS Safety Report 8771645 (Version 2)
Quarter: 2014Q3

REPORT INFORMATION
  Report Type: Spontaneous
  Country: US (occurrence: US)
  Receive Date: 20120905
  Receipt Date: 20140715
  Transmission Date: 20150326
  Serious: No
  Sender: FDA-Public Use
  Company Number: US-ASTRAZENECA-2012SE61019

PATIENT
  Age: 85 Year
  Sex: Male
  Weight: 104.3 kg

DRUGS (4)
  1. BRILINTA [Suspect]
     Active Substance: TICAGRELOR
     Indication: ACUTE CORONARY SYNDROME
     Route: 048
     Dates: start: 20120725
  2. BRILINTA [Suspect]
     Active Substance: TICAGRELOR
     Indication: DEVICE OCCLUSION
     Route: 048
     Dates: start: 20120725
  3. ASPIRIN. [Concomitant]
     Active Substance: ASPIRIN
  4. ASPIRIN. [Concomitant]
     Active Substance: ASPIRIN

REACTIONS (2)
  - Epistaxis [Recovered/Resolved]
  - Off label use [Unknown]
